FAERS Safety Report 6983840-4 (Version None)
Quarter: 2010Q3

REPORT INFORMATION
  Report Type: 
  Country: None (occurrence: None)
  Receive Date: 20100914
  Receipt Date: 20090324
  Transmission Date: 20110219
  Serious: No
  Sender: FDA-Public Use
  Company Number: US-WYE-H08337809

PATIENT
  Age: 60 Year
  Sex: Female
  Weight: 99.88 kg

DRUGS (6)
  1. AXID AR [Suspect]
     Dosage: 1-2 TABLETS DAILY
     Route: 048
     Dates: start: 19990101, end: 20090210
  2. VOLTAREN [Concomitant]
  3. XALATAN [Concomitant]
  4. VAGIFEM [Concomitant]
  5. LOTREL [Concomitant]
  6. LIPITOR [Concomitant]

REACTIONS (2)
  - GASTROOESOPHAGEAL REFLUX DISEASE [None]
  - PHARYNGEAL MASS [None]
